FAERS Safety Report 18744951 (Version 1)
Quarter: 2021Q1

REPORT INFORMATION
  Report Type: Spontaneous
  Country: US (occurrence: US)
  Receive Date: 20210114
  Receipt Date: 20210114
  Transmission Date: 20210419
  Serious: Yes (Death, Other)
  Sender: FDA-Public Use
  Company Number: None

PATIENT
  Age: 56 Year
  Sex: Male
  Weight: 75.2 kg

DRUGS (1)
  1. CHLORHEXIDINE ORAL RINSE 0.12% [Suspect]
     Active Substance: CHLORHEXIDINE GLUCONATE
     Indication: ORAL INFECTION
     Route: 002
     Dates: start: 20200928, end: 20201014

REACTIONS (5)
  - Product quality issue [None]
  - Sputum culture positive [None]
  - Staphylococcal infection [None]
  - Recalled product [None]
  - Burkholderia infection [None]

NARRATIVE: CASE EVENT DATE: 20201009
